FAERS Safety Report 13935910 (Version 1)
Quarter: 2017Q3

REPORT INFORMATION
  Report Type: Spontaneous
  Country: CA (occurrence: CA)
  Receive Date: 20170905
  Receipt Date: 20170905
  Transmission Date: 20171127
  Serious: Yes (Other)
  Sender: FDA-Public Use
  Company Number: CA-MYLANLABS-2017M1053953

PATIENT
  Age: 6 Year
  Sex: Male

DRUGS (2)
  1. METHOTREXATE. [Suspect]
     Active Substance: METHOTREXATE
     Indication: MYCOSIS FUNGOIDES
     Dosage: UNK
     Route: 048
  2. ACITRETIN. [Suspect]
     Active Substance: ACITRETIN
     Indication: MYCOSIS FUNGOIDES
     Dosage: UNK

REACTIONS (1)
  - Drug ineffective [Not Recovered/Not Resolved]
